FAERS Safety Report 9232850 (Version 1)
Quarter: 2013Q2

REPORT INFORMATION
  Report Type: Spontaneous
  Country: GB (occurrence: GB)
  Receive Date: 20130416
  Receipt Date: 20130416
  Transmission Date: 20140414
  Serious: Yes (Other)
  Sender: FDA-Public Use
  Company Number: GB-JNJFOC-20130318336

PATIENT
  Sex: Female

DRUGS (1)
  1. XEPLION [Suspect]
     Indication: SCHIZOPHRENIA
     Route: 030

REACTIONS (4)
  - Amenorrhoea [Unknown]
  - Hyperprolactinaemia [Unknown]
  - Wrong technique in drug usage process [Unknown]
  - Underdose [Not Recovered/Not Resolved]
